FAERS Safety Report 16949519 (Version 2)
Quarter: 2020Q1

REPORT INFORMATION
  Report Type: Spontaneous
  Country: SE (occurrence: SE)
  Receive Date: 20191023
  Receipt Date: 20200101
  Transmission Date: 20200409
  Serious: Yes (Disabling)
  Sender: FDA-Public Use
  Company Number: SE-BAXTER-2019BAX020452

PATIENT
  Age: 45 Year
  Sex: Female

DRUGS (3)
  1. AKYNZEO [Concomitant]
     Active Substance: NETUPITANT\PALONOSETRON HYDROCHLORIDE
     Indication: PRODUCT USED FOR UNKNOWN INDICATION
     Route: 065
  2. SENDOXAN 1000 MG PULVER TILL INJEKTIONSV?TSKA, L?SNING [Suspect]
     Active Substance: CYCLOPHOSPHAMIDE
     Indication: BREAST CANCER
     Route: 042
     Dates: start: 20171228, end: 20180118
  3. EPIRUBICIN [Suspect]
     Active Substance: EPIRUBICIN
     Indication: BREAST CANCER
     Route: 042
     Dates: start: 20171228, end: 20180118

REACTIONS (5)
  - Dizziness [Not Recovered/Not Resolved]
  - Magnetic resonance imaging brain abnormal [Not Recovered/Not Resolved]
  - Inner ear disorder [Not Recovered/Not Resolved]
  - Paraesthesia oral [Not Recovered/Not Resolved]
  - Nystagmus [Not Recovered/Not Resolved]

NARRATIVE: CASE EVENT DATE: 20171228
